FAERS Safety Report 4565947-4 (Version None)
Quarter: 2005Q1

REPORT INFORMATION
  Report Type: 
  Country: None (occurrence: None)
  Receive Date: 20050128
  Receipt Date: 20050124
  Transmission Date: 20050727
  Serious: Yes (Life-Threatening)
  Sender: FDA-Public Use
  Company Number: 2005CG00187

PATIENT
  Age: 73 Year
  Sex: Female
  Weight: 58 kg

DRUGS (4)
  1. ARIMIDEX [Suspect]
     Indication: BREAST CANCER
     Dosage: 1 MG QD PO
     Route: 048
     Dates: end: 20050112
  2. DAFLON [Concomitant]
  3. COAPROVEL [Concomitant]
  4. BROMAZEPAM [Concomitant]

REACTIONS (1)
  - PULMONARY EMBOLISM [None]
